FAERS Safety Report 23161667 (Version 1)
Quarter: 2023Q4

REPORT INFORMATION
  Report Type: Report from Study
  Country: US (occurrence: US)
  Receive Date: 20231108
  Receipt Date: 20231108
  Transmission Date: 20240110
  Serious: Yes (Death)
  Sender: FDA-Public Use
  Company Number: US-ABBVIE-5486974

PATIENT
  Age: 84 Year
  Sex: Male

DRUGS (1)
  1. VENCLEXTA [Suspect]
     Active Substance: VENETOCLAX
     Indication: Chronic lymphocytic leukaemia
     Dosage: END DATE- 4 NOV 2023
     Route: 048
     Dates: start: 20230613

REACTIONS (1)
  - Death [Fatal]

NARRATIVE: CASE EVENT DATE: 20231104
